FAERS Safety Report 5888998-6 (Version None)
Quarter: 2008Q3

REPORT INFORMATION
  Report Type: 
  Country: None (occurrence: None)
  Receive Date: 20080919
  Receipt Date: 20080724
  Transmission Date: 20090109
  Serious: No
  Sender: FDA-Public Use
  Company Number: US-BAYER-200825497NA

PATIENT
  Age: 33 Year
  Sex: Male

DRUGS (4)
  1. LEVITRA [Suspect]
     Indication: ERECTILE DYSFUNCTION
     Dosage: AS USED: 5 MG  UNIT DOSE: 10 MG
     Route: 048
     Dates: start: 20080601, end: 20080601
  2. LEVITRA [Suspect]
     Dosage: AS USED: 5 MG  UNIT DOSE: 10 MG
     Route: 048
     Dates: start: 20080531, end: 20080531
  3. LORAZEPAM [Concomitant]
  4. ANTIRETROVIRALS [Concomitant]

REACTIONS (3)
  - ERECTILE DYSFUNCTION [None]
  - FLUSHING [None]
  - HEADACHE [None]
